FAERS Safety Report 13332341 (Version 1)
Quarter: 2017Q1

REPORT INFORMATION
  Report Type: Report from Study
  Country: BR (occurrence: BR)
  Receive Date: 20170314
  Receipt Date: 20170314
  Transmission Date: 20170428
  Serious: Yes (Other)
  Sender: FDA-Public Use
  Company Number: PHHY2017BR038128

PATIENT
  Age: 92 Year
  Sex: Male

DRUGS (1)
  1. EXELON PATCH [Suspect]
     Active Substance: RIVASTIGMINE
     Indication: DEMENTIA ALZHEIMER^S TYPE
     Dosage: 9.5 MG, (PATCH 10 (CM2)) QD (ONE PATCH PER NIGHT AFTER THE BATH)
     Route: 062

REACTIONS (2)
  - General physical health deterioration [Unknown]
  - Prostate cancer [Unknown]
